FAERS Safety Report 13133077 (Version 1)
Quarter: 2017Q1

REPORT INFORMATION
  Report Type: Spontaneous
  Country: US (occurrence: US)
  Receive Date: 20170118
  Receipt Date: 20170118
  Transmission Date: 20170428
  Serious: Yes (Hospitalization)
  Sender: FDA-Public Use
  Company Number: None

PATIENT
  Age: 73 Year
  Sex: Male

DRUGS (10)
  1. NORTRIPTYLINE [Concomitant]
     Active Substance: NORTRIPTYLINE
  2. ATORVASTATIN [Concomitant]
     Active Substance: ATORVASTATIN
  3. LENALIDOMIDE [Concomitant]
     Active Substance: LENALIDOMIDE
  4. REVLIMID [Suspect]
     Active Substance: LENALIDOMIDE
     Indication: PLASMA CELL MYELOMA
     Dosage: 15MG EVERY OTHER DAY X21D ORAL
     Route: 048
     Dates: start: 201605
  5. DEXAMETHASONE. [Concomitant]
     Active Substance: DEXAMETHASONE
  6. LOSARTAN. [Concomitant]
     Active Substance: LOSARTAN
  7. ATENOLOL. [Concomitant]
     Active Substance: ATENOLOL
  8. AMLODIPINE [Concomitant]
     Active Substance: AMLODIPINE BESYLATE
  9. FAMOTIDINE. [Concomitant]
     Active Substance: FAMOTIDINE
  10. ASPIRIN. [Concomitant]
     Active Substance: ASPIRIN

REACTIONS (7)
  - Chest pain [None]
  - Crepitations [None]
  - Pyrexia [None]
  - Cough [None]
  - Deep vein thrombosis [None]
  - Peripheral swelling [None]
  - Orthopnoea [None]

NARRATIVE: CASE EVENT DATE: 20161202
